FAERS Safety Report 23907956 (Version 1)
Quarter: 2024Q2

REPORT INFORMATION
  Report Type: Report from Study
  Country: US (occurrence: US)
  Receive Date: 20240528
  Receipt Date: 20240528
  Transmission Date: 20240716
  Serious: Yes (Other)
  Sender: FDA-Public Use
  Company Number: US-ABBVIE-5726900

PATIENT
  Sex: Male

DRUGS (2)
  1. VENCLEXTA [Suspect]
     Active Substance: VENETOCLAX
     Indication: Mantle cell lymphoma
     Route: 048
  2. BRUKINSA [Suspect]
     Active Substance: ZANUBRUTINIB
     Indication: Mantle cell lymphoma
     Route: 048
     Dates: start: 20240330

REACTIONS (5)
  - Neoplasm malignant [Unknown]
  - Skin disorder [Unknown]
  - Drug ineffective [Unknown]
  - Feeling abnormal [Unknown]
  - Blood test abnormal [Unknown]
